FAERS Safety Report 9492084 (Version 1)
Quarter: 2013Q3

REPORT INFORMATION
  Report Type: Spontaneous
  Country: US (occurrence: US)
  Receive Date: 20130830
  Receipt Date: 20130830
  Transmission Date: 20140515
  Serious: Yes (Other)
  Sender: FDA-Public Use
  Company Number: US-JNJFOC-20130813747

PATIENT
  Sex: Male

DRUGS (2)
  1. XARELTO [Suspect]
     Indication: PULMONARY EMBOLISM
     Dosage: FOR TWENTY DAYS
     Route: 048
     Dates: start: 2013, end: 201308
  2. XARELTO [Suspect]
     Indication: PULMONARY EMBOLISM
     Dosage: FOR TWENTY DAYS
     Route: 048
     Dates: start: 201308

REACTIONS (2)
  - Thrombosis [Not Recovered/Not Resolved]
  - Inappropriate schedule of drug administration [Unknown]
